FAERS Safety Report 15590919 (Version 6)
Quarter: 2019Q1

REPORT INFORMATION
  Report Type: Spontaneous
  Country: US (occurrence: US)
  Receive Date: 20181106
  Receipt Date: 20190315
  Transmission Date: 20190417
  Serious: No
  Sender: FDA-Public Use
  Company Number: US-PFIZER INC-2018416709

PATIENT
  Age: 66 Year
  Sex: Female
  Weight: 49 kg

DRUGS (3)
  1. LIPITOR [Suspect]
     Active Substance: ATORVASTATIN CALCIUM
     Dosage: 20 MG, 1X/DAY (PROBABLY 14 YEARS)
     Route: 048
     Dates: start: 2004
  2. LIPITOR [Suspect]
     Active Substance: ATORVASTATIN CALCIUM
     Indication: BLOOD CHOLESTEROL ABNORMAL
     Dosage: 20 MG, 1X/DAY (PROBABLY 14 YEARS)
     Route: 048
     Dates: start: 2004
  3. LIPITOR [Suspect]
     Active Substance: ATORVASTATIN CALCIUM
     Dosage: 20 MG, UNK [4-5 NIGHTS]
     Dates: start: 20181012

REACTIONS (8)
  - Myalgia [Unknown]
  - Tongue discomfort [Unknown]
  - Product taste abnormal [Unknown]
  - Product quality issue [Unknown]
  - Product container seal issue [Unknown]
  - Insomnia [Unknown]
  - Poor quality product administered [Unknown]
  - Arthralgia [Unknown]
